FAERS Safety Report 4683998-6 (Version None)
Quarter: 2005Q2

REPORT INFORMATION
  Report Type: 
  Country: None (occurrence: None)
  Receive Date: 20050607
  Receipt Date: 20050524
  Transmission Date: 20051028
  Serious: Yes (Other)
  Sender: FDA-Public Use
  Company Number: CA-GLAXOSMITHKLINE-A0561010A

PATIENT
  Age: 25 Year
  Sex: Female

DRUGS (3)
  1. NYTOL QUICKGELS SOFTGELS [Suspect]
     Route: 048
     Dates: start: 20050524
  2. NYTOL [Suspect]
     Route: 048
     Dates: start: 20050524
  3. TYLENOL (CAPLET) [Suspect]
     Route: 048
     Dates: start: 20050524

REACTIONS (1)
  - INTENTIONAL MISUSE [None]
